FAERS Safety Report 7023766-3 (Version None)
Quarter: 2010Q4

REPORT INFORMATION
  Report Type: 
  Country: None (occurrence: None)
  Receive Date: 20101001
  Receipt Date: 20100826
  Transmission Date: 20110411
  Serious: Yes (Death, Life-Threatening, Hospitalization)
  Sender: FDA-Public Use
  Company Number: JP-JNJFOC-20100107344

PATIENT
  Sex: Male
  Weight: 52 kg

DRUGS (13)
  1. REMICADE [Suspect]
     Indication: CROHN'S DISEASE
     Route: 042
     Dates: start: 20081112, end: 20090217
  2. REMICADE [Suspect]
     Route: 042
     Dates: start: 20081112, end: 20090217
  3. REMICADE [Suspect]
     Dosage: 4TH INFUSION
     Route: 042
     Dates: start: 20081112, end: 20090217
  4. REMICADE [Suspect]
     Route: 042
     Dates: start: 20081112, end: 20090217
  5. LEUKERIN [Concomitant]
     Indication: CROHN'S DISEASE
     Route: 048
  6. PENTASA [Concomitant]
     Indication: CROHN'S DISEASE
     Route: 048
  7. ELENTAL [Concomitant]
     Indication: CROHN'S DISEASE
     Dosage: 3PAC
     Route: 048
  8. IMURAN [Concomitant]
     Indication: CROHN'S DISEASE
     Dosage: 50 MG ALTERNATE DAYS
     Route: 048
  9. FERROUS CITRATE [Concomitant]
     Indication: ANAEMIA
     Route: 048
  10. CORTICOSTEROIDS [Concomitant]
     Indication: PROPHYLAXIS
  11. CORTICOSTEROIDS [Concomitant]
  12. CORTICOSTEROIDS [Concomitant]
  13. CORTICOSTEROIDS [Concomitant]

REACTIONS (4)
  - IMPAIRED HEALING [None]
  - MALIGNANT NEOPLASM PROGRESSION [None]
  - METASTASES TO BONE [None]
  - RECTAL CANCER METASTATIC [None]
